FAERS Safety Report 6976959-5 (Version None)
Quarter: 2010Q3

REPORT INFORMATION
  Report Type: 
  Country: None (occurrence: None)
  Receive Date: 20100910
  Receipt Date: 20090501
  Transmission Date: 20110219
  Serious: No
  Sender: FDA-Public Use
  Company Number: US-WYE-H09264709

PATIENT
  Sex: Male

DRUGS (5)
  1. PRISTIQ [Suspect]
     Indication: DEPRESSION
     Route: 048
     Dates: start: 20090301
  2. LISINOPRIL [Concomitant]
  3. COREG [Concomitant]
  4. LIPITOR [Concomitant]
  5. ZETIA [Concomitant]

REACTIONS (2)
  - LIP SWELLING [None]
  - PRURITUS [None]
